FAERS Safety Report 16487325 (Version 1)
Quarter: 2019Q3

REPORT INFORMATION
  Report Type: Spontaneous
  Country: US (occurrence: US)
  Receive Date: 20190626
  Receipt Date: 20190626
  Transmission Date: 20191004
  Serious: No
  Sender: FDA-Public Use
  Company Number: None

PATIENT
  Age: 69 Year
  Sex: Female
  Weight: 45 kg

DRUGS (3)
  1. GAMUNEX [Suspect]
     Active Substance: HUMAN IMMUNOGLOBULIN G
     Indication: MYASTHENIA GRAVIS
     Dosage: ?          OTHER FREQUENCY:EVERY 3 WEEKS;?
     Route: 041
     Dates: start: 20190611, end: 20190611
  2. TYLENOL 650MG PO [Concomitant]
     Dates: start: 20190611, end: 20190611
  3. GAMUNEX C 10 % [Concomitant]
     Dates: start: 20190611, end: 20190611

REACTIONS (1)
  - Eye haemorrhage [None]

NARRATIVE: CASE EVENT DATE: 20190611
